FAERS Safety Report 7953545-1 (Version None)
Quarter: 2011Q4

REPORT INFORMATION
  Report Type: 
  Country: None (occurrence: None)
  Receive Date: 20111202
  Receipt Date: 20111128
  Transmission Date: 20120403
  Serious: Yes (Hospitalization)
  Sender: FDA-Public Use
  Company Number: FR-PFIZER INC-2011289526

PATIENT
  Age: 57 Year
  Sex: Male

DRUGS (8)
  1. METHOTREXATE [Suspect]
     Dosage: UNK
     Route: 048
     Dates: start: 20061001, end: 20100901
  2. HUMIRA [Suspect]
     Indication: PSORIATIC ARTHROPATHY
     Dosage: UNK
     Dates: start: 20060701, end: 20060901
  3. EZETIMIBE [Concomitant]
  4. OMEPRAZOLE [Concomitant]
  5. CODOLIPRANE [Concomitant]
  6. METHOTREXATE [Suspect]
     Indication: PSORIATIC ARTHROPATHY
     Dosage: UNK
     Dates: start: 20021101, end: 20060601
  7. SULFASALAZINE [Suspect]
     Dosage: UNK
     Route: 048
     Dates: start: 20020901, end: 20021101
  8. PLAVIX [Concomitant]

REACTIONS (1)
  - LUNG ADENOCARCINOMA METASTATIC [None]
